FAERS Safety Report 10043476 (Version 2)
Quarter: 2014Q1

REPORT INFORMATION
  Report Type: Spontaneous
  Country: FR (occurrence: FR)
  Receive Date: 20140328
  Receipt Date: 20140328
  Transmission Date: 20141002
  Serious: Yes (Hospitalization)
  Sender: FDA-Public Use
  Company Number: FR-BAYER-2014-030495

PATIENT
  Age: 37 Year
  Sex: Female

DRUGS (12)
  1. IZILOX [Suspect]
     Indication: TUBERCULOSIS
     Dosage: 400 MG, QD
     Route: 048
     Dates: start: 20131113, end: 20140131
  2. IZILOX [Suspect]
     Indication: TUBERCULOSIS
     Dosage: UNK
     Dates: start: 20140213
  3. PRIMPERAN [Concomitant]
     Dosage: 10 MG, TID
     Route: 048
     Dates: start: 20131123, end: 20140131
  4. PASER [Suspect]
     Indication: TUBERCULOSIS
     Dosage: DAILY DOSE 12 G
     Route: 048
     Dates: start: 20131113, end: 20140131
  5. PASER [Suspect]
     Indication: TUBERCULOSIS
     Dosage: UNK
     Dates: start: 20140213
  6. ETHIONAMIDE [Concomitant]
     Indication: TUBERCULOSIS
     Dosage: DAILY DOSE 750 MG
     Route: 048
     Dates: start: 20131113, end: 20140131
  7. ZOPHREN [Concomitant]
     Dosage: DAILY DOSE 8 MG
     Route: 042
     Dates: start: 20131123, end: 20140131
  8. CYCLOSERINE [Concomitant]
     Indication: TUBERCULOSIS
     Dosage: DAILY DOSE 500 MG
     Route: 048
     Dates: start: 20131113, end: 20140131
  9. CYCLOSERINE [Concomitant]
     Indication: TUBERCULOSIS
     Dosage: UNK
     Dates: start: 20140213
  10. ZYVOXID [Concomitant]
     Indication: TUBERCULOSIS
     Dosage: 600 MG, QD
     Route: 048
     Dates: start: 20131113, end: 20140131
  11. ZYVOXID [Concomitant]
     Indication: TUBERCULOSIS
     Dosage: UNK
     Dates: start: 20140213
  12. AMIKACINE [Concomitant]
     Indication: TUBERCULOSIS
     Dosage: DAILY DOSE 700 MG
     Route: 042
     Dates: start: 20131113, end: 20140131

REACTIONS (3)
  - Prothrombin time shortened [Recovered/Resolved]
  - Hepatic failure [Recovered/Resolved]
  - Coagulation factor decreased [Recovered/Resolved]
